FAERS Safety Report 8128520-7 (Version None)
Quarter: 2012Q1

REPORT INFORMATION
  Report Type: 
  Country: None (occurrence: None)
  Receive Date: 20120210
  Receipt Date: 20120130
  Transmission Date: 20120608
  Serious: Yes (Hospitalization, Other)
  Sender: FDA-Public Use
  Company Number: CA-JNJFOC-20120112597

PATIENT
  Sex: Female
  Weight: 98 kg

DRUGS (4)
  1. REMICADE [Suspect]
     Route: 042
     Dates: start: 20070329, end: 20110926
  2. CELEBREX [Concomitant]
  3. REMICADE [Suspect]
     Indication: ANKYLOSING SPONDYLITIS
     Route: 042
     Dates: start: 20120112
  4. CORTEF [Concomitant]

REACTIONS (1)
  - PITUITARY TUMOUR BENIGN [None]
